FAERS Safety Report 25846439 (Version 1)
Quarter: 2025Q3

REPORT INFORMATION
  Report Type: Spontaneous
  Country: CA (occurrence: CA)
  Receive Date: 20250925
  Receipt Date: 20250925
  Transmission Date: 20251020
  Serious: Yes (Other)
  Sender: PFIZER
  Company Number: CA-PFIZER INC-202500187330

PATIENT
  Age: 52 Year
  Sex: Female
  Weight: 50 kg

DRUGS (22)
  1. INFLIXIMAB [Suspect]
     Active Substance: INFLIXIMAB
     Indication: Crohn^s disease
  2. INFLIXIMAB [Suspect]
     Active Substance: INFLIXIMAB
     Indication: Crohn^s disease
  3. INFLIXIMAB [Suspect]
     Active Substance: INFLIXIMAB
  4. INFLIXIMAB [Suspect]
     Active Substance: INFLIXIMAB
  5. INFLIXIMAB [Suspect]
     Active Substance: INFLIXIMAB
  6. INFLIXIMAB [Suspect]
     Active Substance: INFLIXIMAB
  7. INFLIXIMAB [Suspect]
     Active Substance: INFLIXIMAB
  8. INFLIXIMAB [Suspect]
     Active Substance: INFLIXIMAB
  9. INFLIXIMAB [Suspect]
     Active Substance: INFLIXIMAB
  10. INFLIXIMAB [Suspect]
     Active Substance: INFLIXIMAB
  11. INFLIXIMAB [Suspect]
     Active Substance: INFLIXIMAB
  12. INFLIXIMAB [Suspect]
     Active Substance: INFLIXIMAB
  13. INFLIXIMAB [Suspect]
     Active Substance: INFLIXIMAB
  14. INFLIXIMAB [Suspect]
     Active Substance: INFLIXIMAB
  15. INFLIXIMAB [Suspect]
     Active Substance: INFLIXIMAB
  16. INFLIXIMAB [Suspect]
     Active Substance: INFLIXIMAB
  17. INFLIXIMAB [Suspect]
     Active Substance: INFLIXIMAB
  18. INFLIXIMAB [Suspect]
     Active Substance: INFLIXIMAB
  19. INFLIXIMAB [Suspect]
     Active Substance: INFLIXIMAB
  20. INFLIXIMAB [Suspect]
     Active Substance: INFLIXIMAB
  21. DULOXETINE HYDROCHLORIDE [Suspect]
     Active Substance: DULOXETINE HYDROCHLORIDE
  22. PREDNISONE [Concomitant]
     Active Substance: PREDNISONE

REACTIONS (4)
  - Arthralgia [Recovered/Resolved]
  - Glaucoma [Recovered/Resolved]
  - Hypoaesthesia [Recovered/Resolved]
  - Off label use [Unknown]
